FAERS Safety Report 8455316-9 (Version None)
Quarter: 2012Q2

REPORT INFORMATION
  Report Type: 
  Country: None (occurrence: None)
  Receive Date: 20120621
  Receipt Date: 20120615
  Transmission Date: 20120825
  Serious: Yes (Other)
  Sender: FDA-Public Use
  Company Number: US-PFIZER INC-2012146077

PATIENT
  Sex: Female

DRUGS (1)
  1. CHANTIX [Suspect]
     Dosage: UNK

REACTIONS (5)
  - ASTHMA [None]
  - DYSGEUSIA [None]
  - DYSPNOEA [None]
  - OXYGEN SATURATION DECREASED [None]
  - THERAPEUTIC RESPONSE UNEXPECTED [None]
